FAERS Safety Report 13954280 (Version 1)
Quarter: 2017Q3

REPORT INFORMATION
  Report Type: Spontaneous
  Country: US (occurrence: None)
  Receive Date: 20170910
  Receipt Date: 20170910
  Transmission Date: 20171128
  Serious: No
  Sender: FDA-Public Use
  Company Number: None

PATIENT
  Sex: Female

DRUGS (1)
  1. CAPECITABINE 500 MG ACCORD [Suspect]
     Active Substance: CAPECITABINE
     Indication: COLON NEOPLASM
     Dosage: FREQUENCY - TWICE A DAY FOR 2 WEEKS ON THEN 1 PO
     Route: 048
     Dates: start: 20170118, end: 20170901

REACTIONS (1)
  - Gingival recession [None]
